FAERS Safety Report 9746979 (Version 3)
Quarter: 2016Q2

REPORT INFORMATION
  Report Type: Spontaneous
  Country: PL (occurrence: PL)
  Receive Date: 20131211
  Receipt Date: 20160513
  Transmission Date: 20160815
  Serious: Yes (Hospitalization)
  Sender: FDA-Public Use
  Company Number: PL-MYLANLABS-2013S1027156

PATIENT

DRUGS (4)
  1. ALPRAZOLAM. [Suspect]
     Active Substance: ALPRAZOLAM
     Indication: PRODUCT USED FOR UNKNOWN INDICATION
     Dosage: HIGH DOSE
     Route: 048
  2. CLENBUTEROL [Suspect]
     Active Substance: CLENBUTEROL
     Dosage: 100 TABLETS
  3. CLENBUTEROL [Suspect]
     Active Substance: CLENBUTEROL
     Indication: PRODUCT USED FOR UNKNOWN INDICATION
     Dosage: UNK
     Route: 048
  4. OLANZAPINE. [Suspect]
     Active Substance: OLANZAPINE
     Indication: PRODUCT USED FOR UNKNOWN INDICATION
     Dosage: HIGH DOSE
     Route: 048

REACTIONS (11)
  - Respiration abnormal [Recovered/Resolved]
  - Hypothermia [Unknown]
  - Suicide attempt [Recovering/Resolving]
  - Toxicity to various agents [Recovering/Resolving]
  - Tremor [Unknown]
  - Sinus tachycardia [Recovering/Resolving]
  - Metabolic acidosis [Unknown]
  - Blood pressure decreased [Unknown]
  - Intentional overdose [Recovering/Resolving]
  - Somnolence [Unknown]
  - Hypokalaemia [Recovered/Resolved]
